FAERS Safety Report 10863054 (Version 1)
Quarter: 2015Q1

REPORT INFORMATION
  Report Type: Spontaneous
  Country: GB (occurrence: None)
  Receive Date: 20150219
  Receipt Date: 20150219
  Transmission Date: 20150721
  Serious: Yes (Hospitalization)
  Sender: FDA-Public Use
  Company Number: GB-ZYDUS-006600

PATIENT
  Age: 58 Year
  Sex: Male

DRUGS (3)
  1. RAMIPRIL (RAMIPRIL) [Suspect]
     Active Substance: RAMIPRIL
     Indication: HYPERTENSION
  2. AMLODIPINE [Suspect]
     Active Substance: AMLODIPINE BESYLATE
     Indication: HYPERTENSION
  3. DOXAZOSIN [Suspect]
     Active Substance: DOXAZOSIN\DOXAZOSIN MESYLATE
     Indication: HYPERTENSION

REACTIONS (8)
  - Hypotension [None]
  - Poisoning [None]
  - Blood potassium decreased [None]
  - Intentional overdose [None]
  - Vomiting [None]
  - Acidosis [None]
  - Infusion site reaction [None]
  - Continuous haemodiafiltration [None]
